FAERS Safety Report 6675487-4 (Version None)
Quarter: 2010Q2

REPORT INFORMATION
  Report Type: 
  Country: None (occurrence: None)
  Receive Date: 20100409
  Receipt Date: 20100330
  Transmission Date: 20101027
  Serious: Yes (Life-Threatening, Hospitalization)
  Sender: FDA-Public Use
  Company Number: B0644008A

PATIENT
  Age: 87 Year
  Sex: Female

DRUGS (2)
  1. ARIXTRA [Suspect]
     Indication: PHLEBITIS
     Dosage: 7.5MG PER DAY
     Route: 058
     Dates: start: 20100222, end: 20100226
  2. PYOSTACINE [Concomitant]
     Dosage: 1G TWICE PER DAY
     Route: 065
     Dates: start: 20100222, end: 20100226

REACTIONS (5)
  - ABDOMINAL WALL HAEMATOMA [None]
  - ANAEMIA [None]
  - HAEMATOMA [None]
  - PERITONEAL HAEMATOMA [None]
  - SHOCK HAEMORRHAGIC [None]
